FAERS Safety Report 8793125 (Version 1)
Quarter: 2012Q4

REPORT INFORMATION
  Report Type: 
  Country: US (occurrence: US)
  Receive Date: 20120918
  Receipt Date: 20120918
  Transmission Date: 20130627
  Serious: No
  Sender: FDA-Public Use
  Company Number: US-PFIZER INC-2012230147

PATIENT
  Age: 56 Year
  Sex: Female
  Weight: 101.59 kg

DRUGS (6)
  1. CELEBREX [Suspect]
     Indication: NEUROPATHY PERIPHERAL
     Dosage: UNK, 2x/day
     Route: 048
     Dates: end: 201011
  2. CELEBREX [Suspect]
     Indication: FIBROMYALGIA
  3. FLECTOR [Suspect]
     Indication: NEUROPATHY PERIPHERAL
     Dosage: UNK, 2x/day
     Route: 061
     Dates: start: 201202, end: 20120917
  4. FLECTOR [Suspect]
     Indication: FIBROMYALGIA
  5. NEURONTIN [Concomitant]
     Dosage: UNK
  6. TOPAMAX [Concomitant]
     Dosage: UNK

REACTIONS (6)
  - Weight increased [Not Recovered/Not Resolved]
  - Oedema peripheral [Not Recovered/Not Resolved]
  - Dyspnoea [Not Recovered/Not Resolved]
  - Asthenia [Not Recovered/Not Resolved]
  - Decreased appetite [Not Recovered/Not Resolved]
  - Urine output decreased [Not Recovered/Not Resolved]
